FAERS Safety Report 15846545 (Version 2)
Quarter: 2019Q1

REPORT INFORMATION
  Report Type: Spontaneous
  Country: IN (occurrence: IN)
  Receive Date: 20190121
  Receipt Date: 20190121
  Transmission Date: 20190417
  Serious: Yes (Other)
  Sender: FDA-Public Use
  Company Number: IN-SUN PHARMACEUTICAL INDUSTRIES LTD-2019R1-196439

PATIENT

DRUGS (1)
  1. PHENYTOIN. [Suspect]
     Active Substance: PHENYTOIN
     Indication: PRODUCT USED FOR UNKNOWN INDICATION
     Dosage: UNK
     Route: 065

REACTIONS (1)
  - Sedation complication [Unknown]
